FAERS Safety Report 6058068-5 (Version None)
Quarter: 2009Q1

REPORT INFORMATION
  Report Type: 
  Country: None (occurrence: None)
  Receive Date: 20090127
  Receipt Date: 20090113
  Transmission Date: 20090719
  Serious: Yes (Other)
  Sender: FDA-Public Use
  Company Number: CHPA2009US00785

PATIENT
  Age: 80 Year
  Sex: Male
  Weight: 79.4 kg

DRUGS (2)
  1. EXCEDRIN (MIGRAINE) [Suspect]
     Indication: HEADACHE
     Dosage: 2 DF, QD, ORAL
     Route: 048
     Dates: start: 20090111, end: 20090112
  2. ATENOLOL [Concomitant]

REACTIONS (1)
  - HERPES ZOSTER [None]
